FAERS Safety Report 6401986-6 (Version None)
Quarter: 2009Q4

REPORT INFORMATION
  Report Type: 
  Country: None (occurrence: None)
  Receive Date: 20091015
  Receipt Date: 20091012
  Transmission Date: 20100525
  Serious: Yes (Hospitalization)
  Sender: FDA-Public Use
  Company Number: B0598004A

PATIENT
  Sex: Female
  Weight: 55 kg

DRUGS (4)
  1. LAPATINIB [Suspect]
     Indication: BREAST CANCER
     Dosage: 1500MG PER DAY
     Route: 048
     Dates: start: 20090929
  2. PACLITAXEL [Suspect]
     Indication: BREAST CANCER
     Dosage: 80MGM2 PER DAY
     Route: 042
     Dates: start: 20090929
  3. ASPIRIN [Concomitant]
     Indication: PROPHYLAXIS
     Dosage: 100MG PER DAY
     Route: 048
     Dates: start: 20080501
  4. LOPERAMIDE [Concomitant]
     Dosage: 2MG AS REQUIRED
     Route: 048
     Dates: start: 20091005

REACTIONS (5)
  - DECREASED APPETITE [None]
  - DIARRHOEA [None]
  - FALL [None]
  - FATIGUE [None]
  - WHITE BLOOD CELL COUNT DECREASED [None]
